FAERS Safety Report 8217350-3 (Version None)
Quarter: 2012Q1

REPORT INFORMATION
  Report Type: 
  Country: None (occurrence: None)
  Receive Date: 20120313
  Receipt Date: 20120305
  Transmission Date: 20120608
  Serious: Yes (Disabling)
  Sender: FDA-Public Use
  Company Number: 2012MA003155

PATIENT
  Age: 55 Year
  Sex: Male

DRUGS (4)
  1. LOSARTAN POTASSIUM [Suspect]
     Indication: HYPERTENSION
     Dates: start: 20111101
  2. SIMVASTATIN [Concomitant]
  3. DOXAZOSIN MESYLATE [Concomitant]
  4. BISOPROLOL FUMARATE [Concomitant]

REACTIONS (2)
  - OEDEMA PERIPHERAL [None]
  - WEIGHT INCREASED [None]
